FAERS Safety Report 9361649 (Version 2)
Quarter: 2013Q4

REPORT INFORMATION
  Report Type: Report from Study
  Country: US (occurrence: US)
  Receive Date: 20130621
  Receipt Date: 20131023
  Transmission Date: 20140711
  Serious: Yes (Life-Threatening, Hospitalization)
  Sender: FDA-Public Use
  Company Number: US-MERCK-1306USA007749

PATIENT
  Age: 45 Year
  Sex: Male

DRUGS (5)
  1. VORINOSTAT [Suspect]
     Indication: GLIOBLASTOMA
     Dosage: 400 MG, 7 DAYS ON 7 DAYS OFF
     Route: 048
  2. BEVACIZUMAB [Suspect]
     Indication: GLIOBLASTOMA
     Dosage: 10 MG/KG, EVERY TWO WEEKS
     Route: 042
     Dates: end: 20130516
  3. HEXADROL TABLETS [Concomitant]
     Route: 048
  4. LEVETIRACETAM [Concomitant]
     Dosage: 500 MG, BID
     Route: 048
  5. OMEPRAZOLE [Concomitant]
     Dosage: 20 MG, DAILY

REACTIONS (2)
  - Sinus bradycardia [Recovering/Resolving]
  - Convulsion [Recovering/Resolving]
